FAERS Safety Report 15342914 (Version 5)
Quarter: 2019Q4

REPORT INFORMATION
  Report Type: Report from Study
  Country: None (occurrence: US)
  Receive Date: 20180903
  Receipt Date: 20191014
  Transmission Date: 20200122
  Serious: Yes (Other)
  Sender: FDA-Public Use
  Company Number: US-ABBVIE-18K-163-2469205-00

PATIENT
  Sex: Female
  Weight: 77.18 kg

DRUGS (2)
  1. HUMIRA [Suspect]
     Active Substance: ADALIMUMAB
     Indication: CROHN^S DISEASE
     Route: 058
     Dates: start: 2017, end: 2018
  2. HUMIRA [Suspect]
     Active Substance: ADALIMUMAB
     Route: 058
     Dates: start: 2018

REACTIONS (9)
  - Retinal detachment [Recovered/Resolved with Sequelae]
  - Post procedural complication [Recovered/Resolved]
  - Cataract [Recovered/Resolved]
  - Blindness [Recovered/Resolved with Sequelae]
  - Retinal operation [Recovered/Resolved with Sequelae]
  - Post procedural complication [Recovered/Resolved with Sequelae]
  - Retinal detachment [Recovered/Resolved]
  - Cataract [Not Recovered/Not Resolved]
  - Calcinosis [Not Recovered/Not Resolved]

NARRATIVE: CASE EVENT DATE: 2018
